FAERS Safety Report 9052869 (Version 3)
Quarter: 2013Q1

REPORT INFORMATION
  Report Type: Spontaneous
  Country: US (occurrence: US)
  Receive Date: 20130207
  Receipt Date: 20130320
  Transmission Date: 20140127
  Serious: No
  Sender: FDA-Public Use
  Company Number: US-PFIZER INC-2013046955

PATIENT
  Sex: Female

DRUGS (1)
  1. LEVOXYL [Suspect]
     Dosage: 112 UG, UNK

REACTIONS (3)
  - Product colour issue [Unknown]
  - Suspected counterfeit product [Unknown]
  - Abdominal discomfort [Unknown]
